FAERS Safety Report 8849949 (Version 1)
Quarter: 2012Q4

REPORT INFORMATION
  Report Type: 
  Country: US (occurrence: US)
  Receive Date: 20121019
  Receipt Date: 20121019
  Transmission Date: 20130627
  Serious: Yes (Other)
  Sender: FDA-Public Use
  Company Number: US-JNJFOC-20121007701

PATIENT
  Age: 48 Year
  Sex: Female

DRUGS (4)
  1. NUCYNTA ER [Suspect]
     Indication: BACK PAIN
     Dosage: twice daily
     Route: 048
  2. NUCYNTA ER [Suspect]
     Indication: BACK PAIN
     Route: 048
  3. LITHIUM [Concomitant]
     Indication: BIPOLAR DISORDER
     Route: 065
  4. DEPAKOTE [Concomitant]
     Indication: BIPOLAR DISORDER
     Route: 065

REACTIONS (1)
  - Serotonin syndrome [Unknown]
